FAERS Safety Report 5934276-6 (Version None)
Quarter: 2008Q4

REPORT INFORMATION
  Report Type: 
  Country: None (occurrence: None)
  Receive Date: 20081029
  Receipt Date: 20081017
  Transmission Date: 20090506
  Serious: Yes (Other)
  Sender: FDA-Public Use
  Company Number: PHEH2008US09354

PATIENT
  Sex: Male

DRUGS (8)
  1. DIOVAN [Suspect]
     Indication: HYPERTENSION
     Dosage: 160 MG, QD
     Route: 048
     Dates: start: 20050401, end: 20060101
  2. DIOVAN [Suspect]
     Dosage: 320 MG, QD
     Route: 048
     Dates: start: 20060101, end: 20080919
  3. HYTRIN [Concomitant]
     Dosage: UNK, UNK
  4. CLARITIN [Concomitant]
  5. PROVENTIL [Concomitant]
     Indication: ASTHMA
     Dosage: UNK, PRN
  6. ADVAIR DISKUS 100/50 [Concomitant]
  7. VITAMINS [Concomitant]
  8. ASPIRIN [Concomitant]
     Dosage: UNK, UNK

REACTIONS (9)
  - ANAEMIA [None]
  - HAEMATOCRIT DECREASED [None]
  - HAEMOGLOBIN DECREASED [None]
  - LEUKOPENIA [None]
  - MONOCYTE COUNT DECREASED [None]
  - NEUTROPHIL COUNT DECREASED [None]
  - PLATELET COUNT INCREASED [None]
  - RED BLOOD CELL COUNT DECREASED [None]
  - WHITE BLOOD CELL COUNT DECREASED [None]
